FAERS Safety Report 4966245-7 (Version None)
Quarter: 2006Q2

REPORT INFORMATION
  Report Type: 
  Country: None (occurrence: None)
  Receive Date: 20060407
  Receipt Date: 20051025
  Transmission Date: 20061013
  Serious: Yes (Hospitalization)
  Sender: FDA-Public Use
  Company Number: US-MERCK-0510USA09273

PATIENT
  Age: 71 Year
  Sex: Female
  Weight: 84 kg

DRUGS (5)
  1. VIOXX [Suspect]
     Indication: PAIN
     Route: 048
     Dates: start: 20010112, end: 20040930
  2. VIOXX [Suspect]
     Route: 048
     Dates: start: 20010112, end: 20040930
  3. VIOXX [Suspect]
     Indication: POLYMYALGIA RHEUMATICA
     Route: 048
     Dates: start: 20010112, end: 20040930
  4. VIOXX [Suspect]
     Route: 048
     Dates: start: 20010112, end: 20040930
  5. TYLENOL (CAPLET) [Concomitant]
     Route: 065

REACTIONS (6)
  - CARDIOVASCULAR DISORDER [None]
  - MYOCARDIAL INFARCTION [None]
  - NEOPLASM MALIGNANT [None]
  - PNEUMONIA [None]
  - PULMONARY EMBOLISM [None]
  - THROMBOSIS [None]
